FAERS Safety Report 4516686-7 (Version None)
Quarter: 2004Q4

REPORT INFORMATION
  Report Type: 
  Country: None (occurrence: None)
  Receive Date: 20041029
  Receipt Date: 20040720
  Transmission Date: 20050328
  Serious: No
  Sender: FDA-Public Use
  Company Number: 2004-118620-NL

PATIENT
  Age: 33 Year
  Sex: Female
  Weight: 54.4 kg

DRUGS (4)
  1. NUVARING [Suspect]
     Indication: CONTRACEPTION
     Dosage: DF DAILY VAGINAL
     Route: 067
     Dates: start: 20040301, end: 20040716
  2. EMERGEN-C [Concomitant]
  3. VALTREX [Concomitant]
  4. FLONASE [Concomitant]

REACTIONS (2)
  - MEDICAL DEVICE DISCOMFORT [None]
  - METRORRHAGIA [None]
